FAERS Safety Report 19001551 (Version 2)
Quarter: 2022Q3

REPORT INFORMATION
  Report Type: Spontaneous
  Country: US (occurrence: None)
  Receive Date: 20210312
  Receipt Date: 20220907
  Transmission Date: 20221026
  Serious: No
  Sender: FDA-Public Use
  Company Number: US-FARMAPROD-202010-1368

PATIENT
  Age: 71 Year
  Sex: Female
  Weight: 64.922 kg

DRUGS (32)
  1. OXERVATE [Suspect]
     Active Substance: CENEGERMIN-BKBJ
     Indication: Ulcerative keratitis
     Route: 047
     Dates: start: 20200930, end: 20201111
  2. OXERVATE [Suspect]
     Active Substance: CENEGERMIN-BKBJ
     Indication: Dry eye
     Route: 047
     Dates: start: 20210707
  3. OXERVATE [Suspect]
     Active Substance: CENEGERMIN-BKBJ
     Indication: Corneal abrasion
  4. TOBRADEX [Concomitant]
     Active Substance: DEXAMETHASONE\TOBRAMYCIN
     Dosage: 0.3%-0.1%
  5. POLYMYXIN B SUL-TRIMETHOPRIM [Concomitant]
  6. CYCLOPENTOLATE HYDROCHLORIDE [Concomitant]
     Active Substance: CYCLOPENTOLATE HYDROCHLORIDE
  7. AUGMENTIN [Concomitant]
     Active Substance: AMOXICILLIN\CLAVULANATE POTASSIUM
     Dosage: 875 MG/125 MG
  8. VITAMINS [Concomitant]
     Active Substance: VITAMINS
  9. CALCIUM CITRATE-VIT D3 [Concomitant]
  10. NITRO-BID [Concomitant]
     Active Substance: NITROGLYCERIN
  11. TIMOLOL-DORZOLAMIDE [Concomitant]
     Dosage: 2%-0.5%
  12. EVOXAC [Concomitant]
     Active Substance: CEVIMELINE HYDROCHLORIDE
  13. ACIPHEX [Concomitant]
     Active Substance: RABEPRAZOLE SODIUM
  14. ENSURE ACTIVE HEART HEALTH LIQUID [Concomitant]
  15. NIFEDIPINE [Concomitant]
     Active Substance: NIFEDIPINE
  16. ZOLEDRONIC ACID [Concomitant]
     Active Substance: ZOLEDRONIC ACID
  17. DICLOFENAC SODIUM [Concomitant]
     Active Substance: DICLOFENAC SODIUM
  18. SENNA-S [Concomitant]
     Active Substance: DOCUSATE SODIUM\SENNOSIDES
     Dosage: 8.6 MG-50 MG
  19. MOXIFLOXACIN [Concomitant]
     Active Substance: MOXIFLOXACIN
  20. FLUTICASONE-SALMETEROL [Concomitant]
  21. SILDENAFIL CITRATE [Concomitant]
     Active Substance: SILDENAFIL CITRATE
  22. VITAMIN B12 [Concomitant]
     Active Substance: CYANOCOBALAMIN
  23. VITAMIN D-400 [Concomitant]
  24. XIIDRA [Concomitant]
     Active Substance: LIFITEGRAST
  25. METHOTREXATE SODIUM [Concomitant]
     Active Substance: METHOTREXATE SODIUM
  26. PREDNISONE [Concomitant]
     Active Substance: PREDNISONE
  27. LEVOTHYROXINE [Concomitant]
     Active Substance: LEVOTHYROXINE
  28. GABAPENTIN [Concomitant]
     Active Substance: GABAPENTIN
  29. FISH OIL [Concomitant]
     Active Substance: FISH OIL
     Dosage: 100-150 MG
  30. DUREZOL [Concomitant]
     Active Substance: DIFLUPREDNATE
  31. AMOXICILLIN [Concomitant]
     Active Substance: AMOXICILLIN
  32. ASPIRIN [Concomitant]
     Active Substance: ASPIRIN

REACTIONS (2)
  - Product administration error [Unknown]
  - Product dose omission issue [Unknown]

NARRATIVE: CASE EVENT DATE: 20210911
